FAERS Safety Report 4591280-0 (Version None)
Quarter: 2005Q1

REPORT INFORMATION
  Report Type: 
  Country: None (occurrence: None)
  Receive Date: 20050222
  Receipt Date: 20050207
  Transmission Date: 20050727
  Serious: Yes (Hospitalization)
  Sender: FDA-Public Use
  Company Number: 2005026587

PATIENT
  Age: 61 Year
  Sex: Female

DRUGS (3)
  1. VFEND [Suspect]
     Indication: ASPERGILLOSIS
     Dosage: 360 MG (180 MG, 2 IN 1D), INTRAVENOUS
     Route: 042
     Dates: start: 20041201, end: 20050105
  2. HYZAAR [Concomitant]
  3. PROPRANOLOL [Concomitant]

REACTIONS (2)
  - CHROMATOPSIA [None]
  - VISUAL DISTURBANCE [None]
